FAERS Safety Report 18156202 (Version 1)
Quarter: 2020Q3

REPORT INFORMATION
  Report Type: Spontaneous
  Country: US (occurrence: US)
  Receive Date: 20200815
  Receipt Date: 20200815
  Transmission Date: 20201103
  Serious: Yes (Hospitalization, Disabling)
  Sender: FDA-Public Use
  Company Number: None

PATIENT
  Sex: Female

DRUGS (4)
  1. LEVOXYL [Concomitant]
     Active Substance: LEVOTHYROXINE SODIUM
  2. DEPAKOTE [Suspect]
     Active Substance: DIVALPROEX SODIUM
  3. KEPPRA [Suspect]
     Active Substance: LEVETIRACETAM
     Indication: SEIZURE
     Dates: start: 20171206, end: 20180405
  4. ASA [Concomitant]
     Active Substance: ASPIRIN

REACTIONS (5)
  - Loss of consciousness [None]
  - Brain injury [None]
  - Cerebral haemorrhage [None]
  - Cerebrovascular accident [None]
  - Toxicity to various agents [None]

NARRATIVE: CASE EVENT DATE: 20180216
